FAERS Safety Report 21355789 (Version 1)
Quarter: 2022Q3

REPORT INFORMATION
  Report Type: Spontaneous
  Country: SI (occurrence: SI)
  Receive Date: 20220920
  Receipt Date: 20220920
  Transmission Date: 20221026
  Serious: Yes (Other)
  Sender: FDA-Public Use
  Company Number: SI-PFIZER INC-202201165344

PATIENT
  Age: 88 Year
  Sex: Female

DRUGS (2)
  1. LYRICA [Suspect]
     Active Substance: PREGABALIN
     Indication: Pain
     Dosage: 25 MG, PRESCRIBED LYRICA BY ORTHOPEDIST
  2. LYRICA [Suspect]
     Active Substance: PREGABALIN
     Dosage: OTHER HOSPITAL IT PRESCRIBED 1 CAP IN THE MORNING AND 2 CAPS IN THE EVENING

REACTIONS (4)
  - Cardiovascular disorder [Unknown]
  - Dizziness [Unknown]
  - Balance disorder [Unknown]
  - Memory impairment [Unknown]
